FAERS Safety Report 23082431 (Version 2)
Quarter: 2023Q4

REPORT INFORMATION
  Report Type: Other
  Country: US (occurrence: None)
  Receive Date: 20231019
  Receipt Date: 20231102
  Transmission Date: 20240109
  Serious: Yes (Hospitalization)
  Sender: FDA-Public Use
  Company Number: US-ROCHE-3439406

PATIENT
  Age: 62 Year
  Sex: Male
  Weight: 124.85 kg

DRUGS (13)
  1. OCREVUS [Suspect]
     Active Substance: OCRELIZUMAB
     Indication: Primary progressive multiple sclerosis
     Dosage: STARTED PROBABLY 3 YEARS AGO
     Route: 042
  2. OCREVUS [Suspect]
     Active Substance: OCRELIZUMAB
     Indication: Primary progressive multiple sclerosis
  3. ELIQUIS [Concomitant]
     Active Substance: APIXABAN
  4. DILTIAZEM [Concomitant]
     Active Substance: DILTIAZEM
  5. GABAPENTIN [Concomitant]
     Active Substance: GABAPENTIN
  6. LOSARTAN [Concomitant]
     Active Substance: LOSARTAN
  7. BUPROPION [Concomitant]
     Active Substance: BUPROPION
  8. PANTOPRAZOLE [Concomitant]
     Active Substance: PANTOPRAZOLE
  9. MIRTAZAPINE [Concomitant]
     Active Substance: MIRTAZAPINE
  10. DULOXETINE [Concomitant]
     Active Substance: DULOXETINE
  11. ATORVASTATIN [Concomitant]
     Active Substance: ATORVASTATIN
  12. ERGOCALCIFEROL [Concomitant]
     Active Substance: ERGOCALCIFEROL
  13. PFIZER-BIONTECH COVID-19 VACCINE [Concomitant]
     Active Substance: TOZINAMERAN

REACTIONS (10)
  - Asthenia [Recovered/Resolved]
  - White blood cell count decreased [Recovered/Resolved]
  - Blood potassium decreased [Recovered/Resolved]
  - Blood magnesium decreased [Recovered/Resolved]
  - Urinary tract infection [Recovered/Resolved]
  - White blood cell count increased [Recovered/Resolved]
  - COVID-19 [Recovered/Resolved]
  - Memory impairment [Not Recovered/Not Resolved]
  - Gastrooesophageal reflux disease [Not Recovered/Not Resolved]
  - Atrial fibrillation [Recovered/Resolved]

NARRATIVE: CASE EVENT DATE: 20220401
